FAERS Safety Report 8336297-5 (Version None)
Quarter: 2012Q2

REPORT INFORMATION
  Report Type: 
  Country: None (occurrence: None)
  Receive Date: 20120504
  Receipt Date: 20120427
  Transmission Date: 20120825
  Serious: Yes (Other)
  Sender: FDA-Public Use
  Company Number: PHHY2012BR037502

PATIENT
  Sex: Male
  Weight: 65 kg

DRUGS (2)
  1. TRILEPTAL [Suspect]
     Indication: CONVULSION
     Dosage: 1 DF, QD
     Route: 048
  2. ASPIRIN [Concomitant]
     Indication: BLOOD DISORDER
     Dosage: 1 DF, QD
     Route: 048

REACTIONS (1)
  - SENILE DEMENTIA [None]
